FAERS Safety Report 14609908 (Version 1)
Quarter: 2018Q1

REPORT INFORMATION
  Report Type: Spontaneous
  Country: CN (occurrence: CN)
  Receive Date: 20180307
  Receipt Date: 20180307
  Transmission Date: 20180509
  Serious: Yes (Hospitalization, Other)
  Sender: FDA-Public Use
  Company Number: CN-PFIZER INC-2018090264

PATIENT
  Age: 76 Year
  Sex: Male
  Weight: 50 kg

DRUGS (1)
  1. ZOLOFT [Suspect]
     Active Substance: SERTRALINE HYDROCHLORIDE
     Indication: DEPRESSION
     Dosage: 50 MG, 1X/DAY
     Route: 048
     Dates: start: 20180105, end: 20180112

REACTIONS (5)
  - Blood pressure decreased [Unknown]
  - Muscle contracture [Recovered/Resolved]
  - Hyperhidrosis [Recovered/Resolved]
  - Condition aggravated [Unknown]
  - Parkinson^s disease [Unknown]

NARRATIVE: CASE EVENT DATE: 201801
